FAERS Safety Report 6992515-7 (Version None)
Quarter: 2010Q3

REPORT INFORMATION
  Report Type: 
  Country: None (occurrence: None)
  Receive Date: 20100917
  Receipt Date: 20100903
  Transmission Date: 20110219
  Serious: No
  Sender: FDA-Public Use
  Company Number: US-B.I. PHARMACEUTICALS,INC./RIDGEFIELD-2010-BP-10094BP

PATIENT
  Age: 13 Year
  Sex: Male

DRUGS (1)
  1. ZANTAC 75 [Suspect]
     Indication: ABDOMINAL DISCOMFORT
     Dosage: 75 MG
     Route: 048
     Dates: start: 20100903, end: 20100903

REACTIONS (2)
  - ANGINA PECTORIS [None]
  - MUSCULOSKELETAL PAIN [None]
